FAERS Safety Report 25085990 (Version 1)
Quarter: 2025Q1

REPORT INFORMATION
  Report Type: Spontaneous
  Country: US (occurrence: US)
  Receive Date: 20250317
  Receipt Date: 20250317
  Transmission Date: 20250408
  Serious: No
  Sender: SANOFI AVENTIS
  Company Number: US-SA-2025SA076818

PATIENT
  Age: 57 Year
  Sex: Male

DRUGS (7)
  1. DUPIXENT [Suspect]
     Active Substance: DUPILUMAB
     Indication: Eczema
     Route: 058
     Dates: start: 20250114, end: 20250114
  2. DUPIXENT [Suspect]
     Active Substance: DUPILUMAB
     Dosage: 300 MG, QOW
     Route: 058
     Dates: start: 20250128
  3. FLUTICASONE [Concomitant]
     Active Substance: FLUTICASONE
     Route: 045
  4. AZELASTINE [Concomitant]
     Active Substance: AZELASTINE
  5. PREDNISONE [Concomitant]
     Active Substance: PREDNISONE
  6. FAMOTIDINE [Concomitant]
     Active Substance: FAMOTIDINE
  7. MONTELUKAST [Concomitant]
     Active Substance: MONTELUKAST
     Dates: end: 202502

REACTIONS (2)
  - Eczema [Not Recovered/Not Resolved]
  - Rash erythematous [Not Recovered/Not Resolved]

NARRATIVE: CASE EVENT DATE: 20250301
